FAERS Safety Report 5098573-1 (Version None)
Quarter: 2006Q3

REPORT INFORMATION
  Report Type: 
  Country: None (occurrence: None)
  Receive Date: 20060907
  Receipt Date: 20060727
  Transmission Date: 20061208
  Serious: Yes (Death, Hospitalization)
  Sender: FDA-Public Use
  Company Number: GBWYE386327JUL06

PATIENT
  Sex: Female
  Weight: 73 kg

DRUGS (9)
  1. ENBREL [Suspect]
     Indication: RHEUMATOID ARTHRITIS
     Route: 058
     Dates: start: 20051216, end: 20060510
  2. FERROUS SULFATE TAB [Concomitant]
     Dosage: 200MG FREQUENCY UNKNOWN
     Route: 048
  3. ENALAPRIL [Concomitant]
     Route: 048
  4. FOLIC ACID [Concomitant]
     Route: 048
  5. CODEINE PHOSPHATE/PARACETAMOL [Concomitant]
     Dosage: 30/500 X 2 FOUR TIMES DAILY
     Route: 048
  6. CALCIUM CARBONATE [Concomitant]
     Route: 048
  7. BISOPROLOL FUMARATE [Concomitant]
     Route: 048
  8. METHOTREXATE [Concomitant]
     Route: 048
     Dates: start: 20040624, end: 20060615
  9. ALENDRONATE SODIUM [Concomitant]
     Route: 048

REACTIONS (5)
  - ABDOMINAL PAIN [None]
  - INTESTINAL T-CELL LYMPHOMA [None]
  - RENAL FAILURE [None]
  - SEPSIS [None]
  - VOMITING [None]
